FAERS Safety Report 8614787-5 (Version None)
Quarter: 2012Q3

REPORT INFORMATION
  Report Type: 
  Country: None (occurrence: None)
  Receive Date: 20120823
  Receipt Date: 20120820
  Transmission Date: 20120928
  Serious: Yes (Other)
  Sender: FDA-Public Use
  Company Number: US-PFIZER INC-2012204672

PATIENT
  Age: 58 Year
  Sex: Female

DRUGS (2)
  1. INDERAL LA [Suspect]
     Indication: HYPERTENSION
  2. INDERAL LA [Suspect]
     Indication: ATRIAL FIBRILLATION
     Dosage: 160 MG, DAILY
     Route: 048
     Dates: start: 20040101

REACTIONS (5)
  - OFF LABEL USE [None]
  - MALAISE [None]
  - CARDIAC FLUTTER [None]
  - ATRIAL FIBRILLATION [None]
  - PRODUCT ODOUR ABNORMAL [None]
